FAERS Safety Report 9055296 (Version 1)
Quarter: 2013Q1

REPORT INFORMATION
  Report Type: Spontaneous
  Country: DE (occurrence: DE)
  Receive Date: 20130209
  Receipt Date: 20130209
  Transmission Date: 20140127
  Serious: Yes (Other)
  Sender: FDA-Public Use
  Company Number: DE-TEVA-384364GER

PATIENT
  Age: 66 Year
  Sex: Female
  Weight: 95 kg

DRUGS (2)
  1. TORASEMID [Suspect]
     Dosage: 10 MILLIGRAM DAILY;
     Dates: start: 20121224, end: 201301
  2. CHELIDONIUM MAJUS [Concomitant]

REACTIONS (3)
  - Type 2 diabetes mellitus [Unknown]
  - Gamma-glutamyltransferase increased [Unknown]
  - Depression [Not Recovered/Not Resolved]
